FAERS Safety Report 4931319-3 (Version None)
Quarter: 2006Q1

REPORT INFORMATION
  Report Type: 
  Country: None (occurrence: None)
  Receive Date: 20060228
  Receipt Date: 20060206
  Transmission Date: 20060701
  Serious: Yes (Congenital Anomaly)
  Sender: FDA-Public Use
  Company Number: 8014449

PATIENT
  Sex: Female

DRUGS (3)
  1. KEPPRA [Suspect]
     Indication: CONVULSION
     Dosage: TRP
     Dates: start: 20040101, end: 20050803
  2. FOLIC ACID [Suspect]
     Indication: MEDICAL DIET
     Dosage: TRP
     Dates: end: 20050803
  3. PRENATAL VITAMINS [Suspect]
     Indication: MEDICAL DIET
     Dosage: TRP
     Dates: end: 20050803

REACTIONS (7)
  - BRONCHIOLITIS [None]
  - DRUG EXPOSURE BEFORE PREGNANCY [None]
  - DRUG EXPOSURE DURING PREGNANCY [None]
  - FEEDING DISORDER [None]
  - GASTROOESOPHAGEAL REFLUX DISEASE [None]
  - HEMIHYPERTROPHY [None]
  - SILVER-RUSSELL SYNDROME [None]
